FAERS Safety Report 8520140-5 (Version None)
Quarter: 2012Q3

REPORT INFORMATION
  Report Type: 
  Country: None (occurrence: None)
  Receive Date: 20120719
  Receipt Date: 20120711
  Transmission Date: 20120928
  Serious: Yes (Hospitalization, Other)
  Sender: FDA-Public Use
  Company Number: SK-SANOFI-AVENTIS-2012SA049616

PATIENT
  Age: 84 Year
  Sex: Male
  Weight: 90 kg

DRUGS (16)
  1. ASPIRIN [Suspect]
     Indication: ACUTE CORONARY SYNDROME
     Route: 048
  2. CLOPIDROGREL BISULFATE [Suspect]
     Route: 048
     Dates: start: 20120629
  3. CLOPIDOGREL BISULFATE [Suspect]
     Indication: ACUTE CORONARY SYNDROME
     Route: 048
     Dates: start: 20120628, end: 20120628
  4. METOPROLOL SUCCINATE [Concomitant]
     Dates: start: 20120628, end: 20120629
  5. FUROSEMIDE [Concomitant]
     Dates: start: 20120628, end: 20120628
  6. FUROSEMIDE [Concomitant]
     Dates: start: 20120628, end: 20120628
  7. HYDROCHLOROTHIAZIDE [Concomitant]
     Dates: start: 20120628, end: 20120628
  8. PRESTARIUM [Concomitant]
     Dates: start: 20120628, end: 20120628
  9. PANTOPRAZOLE [Concomitant]
     Dates: start: 20120628, end: 20120628
  10. ASPIRIN [Suspect]
     Route: 048
     Dates: start: 20120629
  11. ISOSORBIDE DINITRATE [Concomitant]
     Dates: start: 20120628, end: 20120628
  12. ACETYLCYSTEINE [Concomitant]
     Dates: start: 20120628, end: 20120628
  13. ASPIRIN [Suspect]
     Route: 048
     Dates: start: 20120628, end: 20120628
  14. BLINDED THERAPY [Suspect]
     Indication: ACUTE CORONARY SYNDROME
     Route: 042
     Dates: start: 20120628, end: 20120628
  15. ATORVASTATIN [Concomitant]
     Dates: start: 20120628
  16. DITHIADEN [Concomitant]
     Dates: start: 20120628, end: 20120628

REACTIONS (2)
  - RETROPERITONEAL HAEMATOMA [None]
  - OESOPHAGITIS HAEMORRHAGIC [None]
